FAERS Safety Report 4790836-X (Version None)
Quarter: 2005Q4

REPORT INFORMATION
  Report Type: 
  Country: None (occurrence: None)
  Receive Date: 20051006
  Receipt Date: 20050429
  Transmission Date: 20060501
  Serious: Yes (Hospitalization)
  Sender: FDA-Public Use
  Company Number: NL-ABBOTT-05P-114-0299300-00

PATIENT
  Sex: Female

DRUGS (3)
  1. DEPAKENE [Suspect]
     Indication: EPILEPSY
     Route: 048
  2. MENINGOCOCCAL POLYSACCHARIDE [Interacting]
     Indication: IMMUNISATION
     Dates: start: 20020906, end: 20020906
  3. CLOBAZAM [Interacting]
     Indication: EPILEPSY
     Route: 048

REACTIONS (3)
  - CONDITION AGGRAVATED [None]
  - DRUG INTERACTION [None]
  - EPILEPSY [None]
